FAERS Safety Report 6147060-8 (Version None)
Quarter: 2009Q2

REPORT INFORMATION
  Report Type: 
  Country: None (occurrence: None)
  Receive Date: 20090403
  Receipt Date: 20090325
  Transmission Date: 20091009
  Serious: Yes (Life-Threatening)
  Sender: FDA-Public Use
  Company Number: 2008TJ0200FU1

PATIENT
  Age: 19 Year
  Sex: Female

DRUGS (7)
  1. TWINJECT 0.3 [Suspect]
     Indication: ANAPHYLACTIC REACTION
     Dosage: 0.3 MG, PRN
     Dates: start: 20080813, end: 20080813
  2. PREDNISONE [Concomitant]
  3. SALBUTAMOL [Concomitant]
  4. SYMBICORT [Concomitant]
  5. PULMICORT-100 [Concomitant]
  6. REACTINE [Concomitant]
  7. SINGULAIR [Concomitant]

REACTIONS (3)
  - DEVICE BREAKAGE [None]
  - DEVICE MALFUNCTION [None]
  - PRODUCT QUALITY ISSUE [None]
